FAERS Safety Report 10027791 (Version 3)
Quarter: 2014Q2

REPORT INFORMATION
  Report Type: Report from Study
  Country: CO (occurrence: CO)
  Receive Date: 20140321
  Receipt Date: 20140418
  Transmission Date: 20141212
  Serious: Yes (Hospitalization, Other)
  Sender: FDA-Public Use
  Company Number: CO-ROCHE-1349927

PATIENT
  Sex: Female
  Weight: 67 kg

DRUGS (3)
  1. XOLAIR [Suspect]
     Indication: ASTHMA
     Route: 058
  2. XOLAIR [Suspect]
     Route: 058
     Dates: start: 201310
  3. MONTELUKAST [Concomitant]

REACTIONS (6)
  - Localised infection [Recovered/Resolved]
  - Lip swelling [Recovered/Resolved]
  - Paraesthesia oral [Recovered/Resolved]
  - Hypertension [Recovered/Resolved]
  - Influenza [Recovering/Resolving]
  - Varicose vein [Unknown]
